FAERS Safety Report 10406744 (Version 4)
Quarter: 2015Q1

REPORT INFORMATION
  Report Type: Spontaneous
  Country: US (occurrence: US)
  Receive Date: 20140825
  Receipt Date: 20150127
  Transmission Date: 20150720
  Serious: Yes (Hospitalization, Other)
  Sender: FDA-Public Use
  Company Number: US-BAYER-2014-126159

PATIENT
  Age: 21 Year
  Sex: Female
  Weight: 45.35 kg

DRUGS (1)
  1. MIRENA [Suspect]
     Active Substance: LEVONORGESTREL
     Indication: CONTRACEPTION
     Dosage: 20 MCG/24HR, CONT
     Route: 015
     Dates: start: 20110624, end: 20120821

REACTIONS (13)
  - Abdominal pain [None]
  - Injury [None]
  - Vaginal haemorrhage [None]
  - Internal injury [None]
  - Complication of device removal [None]
  - Device difficult to use [None]
  - Depression [None]
  - Embedded device [None]
  - Pelvic pain [None]
  - Emotional distress [None]
  - Device breakage [None]
  - Medical device discomfort [None]
  - Anxiety [None]

NARRATIVE: CASE EVENT DATE: 201208
